FAERS Safety Report 22137214 (Version 2)
Quarter: 2023Q1

REPORT INFORMATION
  Report Type: Report from Study
  Country: US (occurrence: US)
  Receive Date: 20230324
  Receipt Date: 20230328
  Transmission Date: 20230417
  Serious: No
  Sender: FDA-Public Use
  Company Number: US-002147023-NVSC2023US066210

PATIENT
  Sex: Female

DRUGS (2)
  1. KISQALI [Suspect]
     Active Substance: RIBOCICLIB
     Indication: Product used for unknown indication
     Dosage: UNK (STARTED TREATMENT MID FEB)
     Route: 065
  2. KISQALI [Suspect]
     Active Substance: RIBOCICLIB
     Dosage: UNK (SECOND CYCLE)
     Route: 065

REACTIONS (1)
  - Malaise [Recovering/Resolving]
